FAERS Safety Report 17809340 (Version 1)
Quarter: 2020Q2

REPORT INFORMATION
  Report Type: Report from Study
  Country: None (occurrence: AU)
  Receive Date: 20200521
  Receipt Date: 20200521
  Transmission Date: 20200714
  Serious: Yes (Death, Hospitalization)
  Sender: FDA-Public Use
  Company Number: AU-ABBVIE-19K-008-2906743-00

PATIENT
  Age: 77 Year
  Sex: Male

DRUGS (2)
  1. DUODOPA [Suspect]
     Active Substance: CARBIDOPA\LEVODOPA
     Dosage: CD 7.1 MLS/HR TO EXTRA DOSE 1ML, MORNING DOSE 12.5 MLS?DOSE DECREASED
     Route: 050
  2. DUODOPA [Suspect]
     Active Substance: CARBIDOPA\LEVODOPA
     Indication: PARKINSON^S DISEASE
     Dosage: CD 0.2 MLS/HR TO ED 2ML, MORNING DOSE?12.5 MLS?100ML GEL CASSETTE
     Route: 050
     Dates: start: 20180704

REACTIONS (16)
  - Kyphosis [Unknown]
  - Physical deconditioning [Unknown]
  - Mobility decreased [Unknown]
  - Dyskinesia [Unknown]
  - Cognitive disorder [Unknown]
  - Device difficult to use [Unknown]
  - Weight decreased [Unknown]
  - Incorrect route of product administration [Unknown]
  - Device occlusion [Not Recovered/Not Resolved]
  - Device dislocation [Not Recovered/Not Resolved]
  - Feeding disorder [Unknown]
  - Device deployment issue [Unknown]
  - Abnormal behaviour [Unknown]
  - Pneumonia aspiration [Fatal]
  - Movement disorder [Unknown]
  - Incorrect route of product administration [Unknown]

NARRATIVE: CASE EVENT DATE: 201908
